FAERS Safety Report 10132627 (Version 2)
Quarter: 2014Q2

REPORT INFORMATION
  Report Type: Spontaneous
  Country: US (occurrence: US)
  Receive Date: 20140428
  Receipt Date: 20140428
  Transmission Date: 20141212
  Serious: No
  Sender: FDA-Public Use
  Company Number: US-MALLINCKRODT-T201304263

PATIENT
  Age: 62 Year
  Sex: Female

DRUGS (3)
  1. HYDROCODONE/ACETAMINOPHEN [Suspect]
     Indication: PAIN
     Dosage: 10/500 MG, ONE TABLET TID
     Route: 048
     Dates: start: 20130815
  2. CADUET [Concomitant]
     Indication: BLOOD PRESSURE
     Dosage: UNK
     Dates: start: 1998
  3. LORTAB                             /00607101/ [Concomitant]
     Indication: PAIN
     Dosage: 10/500 MG, TID
     Route: 048
     Dates: end: 20130815

REACTIONS (4)
  - Sinusitis [Unknown]
  - Skin exfoliation [Not Recovered/Not Resolved]
  - Rash macular [Not Recovered/Not Resolved]
  - Wrong technique in drug usage process [Not Recovered/Not Resolved]
